FAERS Safety Report 25841304 (Version 1)
Quarter: 2025Q3

REPORT INFORMATION
  Report Type: Spontaneous
  Country: US (occurrence: US)
  Receive Date: 20250924
  Receipt Date: 20250924
  Transmission Date: 20251021
  Serious: Yes (Other)
  Sender: PFIZER
  Company Number: US-PFIZER INC-PV202500111764

PATIENT
  Age: 79 Year
  Sex: Female

DRUGS (14)
  1. TOFACITINIB [Suspect]
     Active Substance: TOFACITINIB
     Indication: Rheumatoid arthritis
     Dosage: 11 MG, 1X/DAY, EXTENDED RELEASE
     Route: 048
  2. TIMOLOL [Concomitant]
     Active Substance: TIMOLOL
     Indication: Glaucoma
     Dosage: UNK UNK, 2X/DAY,TOPICAL
  3. BRIMONIDINE [Concomitant]
     Active Substance: BRIMONIDINE TARTRATE
     Indication: Glaucoma
     Dosage: UNK UNK, 3X/DAY
  4. BRINZOLAMIDE [Concomitant]
     Active Substance: BRINZOLAMIDE
     Indication: Glaucoma
     Dosage: UNK UNK, 3X/DAY
  5. NETARSUDIL [Concomitant]
     Active Substance: NETARSUDIL
     Indication: Glaucoma
  6. LATANOPROST [Concomitant]
     Active Substance: LATANOPROST
     Indication: Glaucoma
  7. ACETAZOLAMIDE [Concomitant]
     Active Substance: ACETAZOLAMIDE
     Indication: Glaucoma
     Dosage: 250 MG, 3X/DAY
     Route: 048
  8. ALENDRONATE [Concomitant]
     Active Substance: ALENDRONATE SODIUM
     Indication: Glaucoma
  9. GLIPIZIDE [Concomitant]
     Active Substance: GLIPIZIDE
     Indication: Diabetes mellitus
  10. ROSUVASTATIN [Concomitant]
     Active Substance: ROSUVASTATIN
     Indication: Rheumatoid arthritis
  11. HYDROCHLOROTHIAZIDE [Concomitant]
     Active Substance: HYDROCHLOROTHIAZIDE
     Indication: Hypertension
  12. TRAMADOL [Concomitant]
     Active Substance: TRAMADOL
     Indication: Rheumatoid arthritis
  13. MECLIZINE [Concomitant]
     Active Substance: MECLIZINE HYDROCHLORIDE
     Indication: Rheumatoid arthritis
  14. BEVACIZUMAB [Concomitant]
     Active Substance: BEVACIZUMAB
     Indication: Neovascularisation

REACTIONS (2)
  - Cytomegalovirus chorioretinitis [Unknown]
  - Immunosuppression [Unknown]
